FAERS Safety Report 22066257 (Version 1)
Quarter: 2023Q1

REPORT INFORMATION
  Report Type: Spontaneous
  Country: US (occurrence: US)
  Receive Date: 20230306
  Receipt Date: 20230306
  Transmission Date: 20230417
  Serious: Yes (Other)
  Sender: FDA-Public Use
  Company Number: US-ALLERGAN-2305831US

PATIENT

DRUGS (3)
  1. REFRESH PLUS [Suspect]
     Active Substance: CARBOXYMETHYLCELLULOSE SODIUM
     Indication: Dry eye
  2. RESTASIS [Suspect]
     Active Substance: CYCLOSPORINE
     Indication: Product used for unknown indication
  3. DUREZOL [Suspect]
     Active Substance: DIFLUPREDNATE
     Indication: Product used for unknown indication

REACTIONS (8)
  - Retinal detachment [Unknown]
  - Cataract [Unknown]
  - Retinal oedema [Unknown]
  - Impaired driving ability [Unknown]
  - Vision blurred [Unknown]
  - Eye irritation [Unknown]
  - Eye discharge [Unknown]
  - Drug ineffective [Unknown]
